FAERS Safety Report 9104080 (Version 1)
Quarter: 2013Q1

REPORT INFORMATION
  Report Type: Spontaneous
  Country: CO (occurrence: CO)
  Receive Date: 20130219
  Receipt Date: 20130219
  Transmission Date: 20140127
  Serious: Yes (Hospitalization)
  Sender: FDA-Public Use
  Company Number: CO-ROCHE-1192692

PATIENT
  Age: 60 Year
  Sex: Male

DRUGS (4)
  1. XOLAIR [Suspect]
     Indication: ASTHMA
     Route: 058
     Dates: start: 20120113, end: 201302
  2. ATORVASTATIN [Concomitant]
  3. ASAWIN [Concomitant]
  4. VERAPAMIL [Concomitant]

REACTIONS (1)
  - Diarrhoea haemorrhagic [Unknown]
